FAERS Safety Report 11817580 (Version 2)
Quarter: 2016Q1

REPORT INFORMATION
  Report Type: Spontaneous
  Country: US (occurrence: US)
  Receive Date: 20151210
  Receipt Date: 20160109
  Transmission Date: 20160525
  Serious: No
  Sender: FDA-Public Use
  Company Number: US-JNJFOC-20151200037

PATIENT
  Age: 64 Year
  Sex: Female

DRUGS (2)
  1. RISPERDAL CONSTA [Suspect]
     Active Substance: RISPERIDONE
     Indication: PSYCHOTIC DISORDER
     Route: 030
     Dates: start: 20151125, end: 20151125
  2. RISPERDAL CONSTA [Suspect]
     Active Substance: RISPERIDONE
     Indication: PSYCHOTIC DISORDER
     Route: 030
     Dates: start: 20100219

REACTIONS (3)
  - Underdose [Recovered/Resolved]
  - Device occlusion [Unknown]
  - Device malfunction [Unknown]

NARRATIVE: CASE EVENT DATE: 20151125
